FAERS Safety Report 7492253-0 (Version None)
Quarter: 2011Q2

REPORT INFORMATION
  Report Type: 
  Country: None (occurrence: None)
  Receive Date: 20110519
  Receipt Date: 20110509
  Transmission Date: 20111010
  Serious: Yes (Other)
  Sender: FDA-Public Use
  Company Number: US-GENENTECH-318882

PATIENT

DRUGS (2)
  1. VORINOSTAT [Suspect]
     Indication: NON-HODGKIN'S LYMPHOMA
     Dosage: 200 MG, BID
     Route: 048
  2. RITUXIMAB [Suspect]
     Indication: NON-HODGKIN'S LYMPHOMA
     Dosage: UNK
     Route: 065

REACTIONS (10)
  - DEHYDRATION [None]
  - HYPOTENSION [None]
  - INFECTION [None]
  - SYNCOPE [None]
  - NEUTROPENIA [None]
  - THROMBOSIS [None]
  - HYPERGLYCAEMIA [None]
  - DIARRHOEA [None]
  - FATIGUE [None]
  - HYPOPHOSPHATAEMIA [None]
